FAERS Safety Report 7129854-5 (Version None)
Quarter: 2010Q4

REPORT INFORMATION
  Report Type: 
  Country: None (occurrence: None)
  Receive Date: 20101130
  Receipt Date: 20100924
  Transmission Date: 20110411
  Serious: Yes (Other)
  Sender: FDA-Public Use
  Company Number: US-AMGEN-QUU438724

PATIENT

DRUGS (4)
  1. NPLATE [Suspect]
     Indication: IDIOPATHIC THROMBOCYTOPENIC PURPURA
     Dosage: 500 A?G, UNK
     Dates: start: 20091116, end: 20091207
  2. IMMU-G [Concomitant]
     Dosage: UNK UNK, UNK
     Dates: start: 20091103
  3. DANAZOL [Concomitant]
  4. CORTICOSTEROID NOS [Concomitant]
     Dosage: UNK UNK, UNK
     Dates: start: 20090706, end: 20090812

REACTIONS (1)
  - DRUG INEFFECTIVE [None]
